FAERS Safety Report 5875721-4 (Version None)
Quarter: 2008Q3

REPORT INFORMATION
  Report Type: 
  Country: None (occurrence: None)
  Receive Date: 20080909
  Receipt Date: 20080827
  Transmission Date: 20090109
  Serious: Yes (Death, Other)
  Sender: FDA-Public Use
  Company Number: PA-GENENTECH-267478

PATIENT
  Age: 49 Year
  Sex: Male

DRUGS (3)
  1. MABTHERA [Suspect]
     Indication: NON-HODGKIN'S LYMPHOMA
     Route: 042
  2. CYTARABINE [Suspect]
     Indication: NON-HODGKIN'S LYMPHOMA
  3. METHOTREXATE [Suspect]
     Indication: NON-HODGKIN'S LYMPHOMA

REACTIONS (2)
  - DEATH [None]
  - INFUSION RELATED REACTION [None]
